FAERS Safety Report 16029820 (Version 1)
Quarter: 2019Q1

REPORT INFORMATION
  Report Type: Spontaneous
  Country: US (occurrence: US)
  Receive Date: 20190304
  Receipt Date: 20190304
  Transmission Date: 20190418
  Serious: No
  Sender: FDA-Public Use
  Company Number: US-MYLANLABS-2019M1014756

PATIENT
  Sex: Female
  Weight: 67.13 kg

DRUGS (1)
  1. MAXZIDE [Suspect]
     Active Substance: HYDROCHLOROTHIAZIDE\TRIAMTERENE
     Indication: PERIPHERAL SWELLING
     Dosage: UNK
     Route: 048

REACTIONS (5)
  - Joint effusion [Unknown]
  - Hair growth abnormal [Unknown]
  - Musculoskeletal stiffness [Unknown]
  - Acne [Recovered/Resolved]
  - Drug ineffective [Unknown]
